FAERS Safety Report 11773677 (Version 2)
Quarter: 2015Q4

REPORT INFORMATION
  Report Type: Report from Study
  Country: US (occurrence: US)
  Receive Date: 20151124
  Receipt Date: 20151125
  Transmission Date: 20160304
  Serious: Yes (Hospitalization, Other)
  Sender: FDA-Public Use
  Company Number: US-BAYER-2015-123151

PATIENT
  Age: 57 Year
  Sex: Female
  Weight: 77.98 kg

DRUGS (8)
  1. OPSUMIT [Suspect]
     Active Substance: MACITENTAN
  2. ADEMPAS [Suspect]
     Active Substance: RIOCIGUAT
     Indication: PULMONARY ARTERIAL HYPERTENSION
     Dosage: 2 MG, TID
     Route: 048
  3. ADEMPAS [Suspect]
     Active Substance: RIOCIGUAT
     Indication: PULMONARY ARTERIAL HYPERTENSION
     Dosage: UNK
     Dates: start: 20150227
  4. ADEMPAS [Suspect]
     Active Substance: RIOCIGUAT
     Indication: PULMONARY ARTERIAL HYPERTENSION
     Dosage: 1 MG, TID
     Dates: start: 20150302
  5. ADEMPAS [Suspect]
     Active Substance: RIOCIGUAT
     Indication: PULMONARY ARTERIAL HYPERTENSION
     Dosage: 1 MG, TID (LAST SHIP DATE 27-FEB-2015)
  6. ADEMPAS [Suspect]
     Active Substance: RIOCIGUAT
     Indication: PULMONARY ARTERIAL HYPERTENSION
     Dosage: 2.5 MG, TID
     Route: 048
  7. ADEMPAS [Suspect]
     Active Substance: RIOCIGUAT
     Indication: PULMONARY ARTERIAL HYPERTENSION
     Dosage: 1.5 MG, TID
     Route: 048
     Dates: start: 20150421
  8. ADEMPAS [Suspect]
     Active Substance: RIOCIGUAT
     Indication: PULMONARY ARTERIAL HYPERTENSION
     Dosage: 2.5 MG, TID
     Route: 048

REACTIONS (20)
  - Blood iron decreased [Unknown]
  - Dyspnoea [None]
  - Haemorrhage [None]
  - Drug dose omission [Unknown]
  - Oropharyngeal discomfort [None]
  - Asthenia [Unknown]
  - Dizziness [Unknown]
  - Food craving [None]
  - Fatigue [None]
  - Oxygen saturation decreased [None]
  - Hyperhidrosis [Recovering/Resolving]
  - Blood count abnormal [None]
  - Malaise [None]
  - Blood pressure fluctuation [None]
  - Hypotension [None]
  - Product distribution issue [None]
  - Anaemia [None]
  - Syncope [None]
  - Chest pain [Unknown]
  - Hot flush [None]
